FAERS Safety Report 25479239 (Version 1)
Quarter: 2025Q2

REPORT INFORMATION
  Report Type: Spontaneous
  Country: US (occurrence: None)
  Receive Date: 20250625
  Receipt Date: 20250625
  Transmission Date: 20250717
  Serious: Yes (Hospitalization)
  Sender: FDA-CTU
  Company Number: None

PATIENT
  Age: 72 Year
  Sex: Male
  Weight: 75.3 kg

DRUGS (3)
  1. YESCARTA [Suspect]
     Active Substance: AXICABTAGENE CILOLEUCEL
  2. FLUDARADINE [Concomitant]
  3. CYCLOPHOSPHAMIDE [Concomitant]
     Active Substance: CYCLOPHOSPHAMIDE

REACTIONS (17)
  - Cytokine release syndrome [None]
  - Hypotension [None]
  - Nausea [None]
  - Malaise [None]
  - C-reactive protein increased [None]
  - Serum ferritin increased [None]
  - Neurotoxicity [None]
  - Somnolence [None]
  - Confusional state [None]
  - Disorientation [None]
  - Dysphagia [None]
  - Depressed level of consciousness [None]
  - Memory impairment [None]
  - Loss of personal independence in daily activities [None]
  - Lethargy [None]
  - Sensory loss [None]
  - Tremor [None]

NARRATIVE: CASE EVENT DATE: 20250523
